FAERS Safety Report 24314752 (Version 2)
Quarter: 2025Q2

REPORT INFORMATION
  Report Type: Spontaneous
  Country: US (occurrence: US)
  Receive Date: 20240913
  Receipt Date: 20250506
  Transmission Date: 20250717
  Serious: Yes (Life-Threatening, Hospitalization, Other)
  Sender: AUROBINDO
  Company Number: US-MLMSERVICE-20240827-PI175080-00271-1

PATIENT
  Age: 32 Year
  Sex: Male

DRUGS (1)
  1. PREDNISONE [Suspect]
     Active Substance: PREDNISONE
     Indication: Viral pericarditis
     Route: 048

REACTIONS (2)
  - Myocardial rupture [Recovering/Resolving]
  - Cardiac pseudoaneurysm [Recovering/Resolving]
